FAERS Safety Report 24584467 (Version 10)
Quarter: 2025Q2

REPORT INFORMATION
  Report Type: Report from Study
  Country: US (occurrence: US)
  Receive Date: 20241106
  Receipt Date: 20250604
  Transmission Date: 20250716
  Serious: Yes (Hospitalization, Other)
  Sender: PFIZER
  Company Number: US-PFIZER INC-202400293776

PATIENT
  Age: 73 Year
  Sex: Female

DRUGS (24)
  1. VYNDAMAX [Suspect]
     Active Substance: TAFAMIDIS
     Indication: Acquired ATTR amyloidosis
     Dosage: TAKE 61 MG BY MOUTH DAILY
     Route: 048
     Dates: start: 20240726
  2. ATORVASTATIN [Concomitant]
     Active Substance: ATORVASTATIN
  3. BASAGLAR [Concomitant]
     Active Substance: INSULIN GLARGINE
  4. CALCIUM [Concomitant]
     Active Substance: CALCIUM
  5. CLOPIDOGREL [Concomitant]
     Active Substance: CLOPIDOGREL BISULFATE
  6. FUROSEMIDE [Concomitant]
     Active Substance: FUROSEMIDE
  7. METFORMIN [Concomitant]
     Active Substance: METFORMIN HYDROCHLORIDE
  8. METHENAMINE [Concomitant]
     Active Substance: METHENAMINE
  9. MIDODRINE [Concomitant]
     Active Substance: MIDODRINE
  10. NOVOLOG [Concomitant]
     Active Substance: INSULIN ASPART
  11. OZEMPIC [Concomitant]
     Active Substance: SEMAGLUTIDE
  12. PANTOPRAZOLE [Concomitant]
     Active Substance: PANTOPRAZOLE
  13. POTASSIUM [Concomitant]
     Active Substance: POTASSIUM
  14. XARELTO [Concomitant]
     Active Substance: RIVAROXABAN
  15. LEVOTHYROXINE [Concomitant]
     Active Substance: LEVOTHYROXINE
  16. ALBUTEROL [Concomitant]
     Active Substance: ALBUTEROL
  17. FLUCONAZOLE [Concomitant]
     Active Substance: FLUCONAZOLE
  18. METHENAMINE HIPPURATE [Concomitant]
     Active Substance: METHENAMINE HIPPURATE
  19. POTASSIUM CHLORIDE [Concomitant]
     Active Substance: POTASSIUM CHLORIDE
  20. CALCIUM\CHOLECALCIFEROL [Concomitant]
     Active Substance: CALCIUM\CHOLECALCIFEROL
  21. BRILINTA [Concomitant]
     Active Substance: TICAGRELOR
  22. ASPIRIN [Concomitant]
     Active Substance: ASPIRIN
  23. PAXIL [Concomitant]
     Active Substance: PAROXETINE HYDROCHLORIDE
     Indication: Depression
  24. ASPIRIN [Concomitant]
     Active Substance: ASPIRIN

REACTIONS (14)
  - Dizziness postural [Unknown]
  - Heart rate irregular [Unknown]
  - Gastrointestinal haemorrhage [Unknown]
  - Pneumonia [Not Recovered/Not Resolved]
  - Influenza [Not Recovered/Not Resolved]
  - Dyspnoea [Unknown]
  - Stent placement [Unknown]
  - Atrial fibrillation [Unknown]
  - Feeding disorder [Unknown]
  - Hypotension [Unknown]
  - Stenosis [Unknown]
  - Sciatica [Unknown]
  - Arthralgia [Unknown]
  - Product dose omission issue [Unknown]

NARRATIVE: CASE EVENT DATE: 20241001
